FAERS Safety Report 14325759 (Version 1)
Quarter: 2017Q4

REPORT INFORMATION
  Report Type: Spontaneous
  Country: LB (occurrence: LB)
  Receive Date: 20171226
  Receipt Date: 20171226
  Transmission Date: 20180321
  Serious: Yes (Death)
  Sender: FDA-Public Use
  Company Number: LB-NOVOPROD-577818

PATIENT
  Age: 27 Year
  Sex: Male

DRUGS (2)
  1. NOVOSEVEN [Suspect]
     Active Substance: COAGULATION FACTOR VIIA RECOMBINANT HUMAN
     Indication: TRAUMATIC HAEMORRHAGE
     Dosage: 1 DOSE OF NOVOSEVEN EQUIVALENT TO 90MCG/KG
     Route: 065
  2. NOVOSEVEN [Suspect]
     Active Substance: COAGULATION FACTOR VIIA RECOMBINANT HUMAN
     Indication: SURGERY

REACTIONS (2)
  - Off label use [Unknown]
  - Sepsis [Fatal]
